FAERS Safety Report 10370766 (Version 1)
Quarter: 2014Q3

REPORT INFORMATION
  Report Type: Spontaneous
  Country: IQ (occurrence: IQ)
  Receive Date: 20140808
  Receipt Date: 20140808
  Transmission Date: 20150326
  Serious: Yes (Other)
  Sender: FDA-Public Use
  Company Number: IQ-JNJFOC-20140803801

PATIENT

DRUGS (2)
  1. REMICADE [Suspect]
     Active Substance: INFLIXIMAB
     Indication: RHEUMATOID ARTHRITIS
     Route: 042
  2. ANTI- TUBERCULOSIS DRUGS [Suspect]
     Active Substance: UNSPECIFIED INGREDIENT
     Indication: TUBERCULOSIS
     Route: 065

REACTIONS (2)
  - Tuberculosis [Unknown]
  - Hepatitis B [Unknown]
